FAERS Safety Report 21871540 (Version 3)
Quarter: 2023Q1

REPORT INFORMATION
  Report Type: Spontaneous
  Country: JP (occurrence: JP)
  Receive Date: 20230117
  Receipt Date: 20230302
  Transmission Date: 20230418
  Serious: Yes (Hospitalization, Other)
  Sender: FDA-Public Use
  Company Number: None

PATIENT

DRUGS (6)
  1. NUCALA [Suspect]
     Active Substance: MEPOLIZUMAB
     Indication: Eosinophilic granulomatosis with polyangiitis
     Dosage: 300 MG
     Route: 058
     Dates: start: 20221129, end: 20221129
  2. LANSOPRAZOLE [Concomitant]
     Active Substance: LANSOPRAZOLE
     Indication: Prophylaxis
     Dosage: 15 MG, 1D
     Route: 048
     Dates: start: 2021
  3. PREDNISOLONE [Concomitant]
     Active Substance: PREDNISOLONE
     Indication: Eosinophilic granulomatosis with polyangiitis
     Dosage: 8 MG, 1D
     Route: 048
     Dates: start: 20210527
  4. CLARITHROMYCIN [Concomitant]
     Active Substance: CLARITHROMYCIN
     Indication: Chronic obstructive pulmonary disease
     Dosage: 400 MG, 1D
     Route: 048
     Dates: start: 20210527
  5. IMURAN [Concomitant]
     Active Substance: AZATHIOPRINE
     Indication: Eosinophilic granulomatosis with polyangiitis
     Dosage: 50 UNK, 1D
     Route: 048
     Dates: start: 20210928, end: 20221220
  6. DAIPHEN TABLET [Concomitant]
     Indication: Prophylaxis
     Dosage: 1 DF, 1D
     Route: 048
     Dates: start: 20210527, end: 20221220

REACTIONS (7)
  - Eosinophilic granulomatosis with polyangiitis [Recovered/Resolved]
  - Condition aggravated [Recovered/Resolved]
  - Enterocolitis [Recovered/Resolved]
  - Abdominal pain [Recovered/Resolved]
  - Arthralgia [Recovered/Resolved]
  - Diarrhoea [Recovered/Resolved]
  - Therapeutic product effect incomplete [Unknown]

NARRATIVE: CASE EVENT DATE: 20221219
